FAERS Safety Report 5817714-9 (Version None)
Quarter: 2008Q3

REPORT INFORMATION
  Report Type: 
  Country: None (occurrence: None)
  Receive Date: 20080722
  Receipt Date: 20080709
  Transmission Date: 20090109
  Serious: Yes (Other)
  Sender: FDA-Public Use
  Company Number: PHEH2008US06120

PATIENT
  Sex: Female

DRUGS (1)
  1. ELIDEL [Suspect]
     Indication: ECZEMA
     Dosage: UNK
     Route: 061
     Dates: start: 20030301

REACTIONS (2)
  - DRUG EXPOSURE DURING PREGNANCY [None]
  - HODGKIN'S DISEASE [None]
